FAERS Safety Report 23056958 (Version 2)
Quarter: 2024Q3

REPORT INFORMATION
  Report Type: Other
  Country: NL (occurrence: NL)
  Receive Date: 20231012
  Receipt Date: 20240704
  Transmission Date: 20241017
  Serious: Yes (Hospitalization)
  Sender: DENTSPLY
  Company Number: NL-DENTSPLY-2023SCDP000339

PATIENT
  Age: 94 Year
  Sex: Female

DRUGS (9)
  1. XYLOCAINE [Suspect]
     Active Substance: LIDOCAINE HYDROCHLORIDE\LIDOCAINE HYDROCHLORIDE ANHYDROUS
     Indication: Product used for unknown indication
     Dosage: UNK DOSE OF XYLOCAINE GEL (MOUTH) (PDF)
  2. XYLOCAINE [Suspect]
     Active Substance: LIDOCAINE HYDROCHLORIDE\LIDOCAINE HYDROCHLORIDE ANHYDROUS
     Dosage: UNK DOSE OF XYLOCAINE GEL (MOUTH) (PDF)
  3. CEMIPLIMAB [Suspect]
     Active Substance: CEMIPLIMAB
     Indication: Angiosarcoma metastatic
     Dosage: UNK DOSE OF CEMIPLIMAB SOLUTION FOR INFUSION (PDF)
     Dates: end: 20230828
  4. PREDNISOLONE [Concomitant]
     Active Substance: PREDNISOLONE
     Indication: Product used for unknown indication
     Dosage: UNK (BDF)
  5. PREDNISOLONE [Concomitant]
     Active Substance: PREDNISOLONE
     Dosage: UNK (BDF)
  6. TRIAMCINOLONE ACETONIDE [Concomitant]
     Active Substance: TRIAMCINOLONE ACETONIDE
     Indication: Product used for unknown indication
     Dosage: UNK DOSE OF TRIAMCINOLONE ACETONIDE CREAM (SKIN) (PDF)
     Route: 061
  7. TRIAMCINOLONE ACETONIDE [Concomitant]
     Active Substance: TRIAMCINOLONE ACETONIDE
     Dosage: UNK DOSE OF TRIAMCINOLONE ACETONIDE CREAM (SKIN) (PDF)
     Route: 061
  8. CLOBETASOL [Concomitant]
     Active Substance: CLOBETASOL
     Indication: Product used for unknown indication
     Dosage: UNK DOSE OF CLOBETASOL MOUTHWASH (PDF)
  9. CLOBETASOL [Concomitant]
     Active Substance: CLOBETASOL
     Dosage: UNK DOSE OF CLOBETASOL MOUTHWASH (PDF)

REACTIONS (1)
  - Drug eruption [Recovered/Resolved]

NARRATIVE: CASE EVENT DATE: 20230914
